FAERS Safety Report 6660662-5 (Version None)
Quarter: 2010Q1

REPORT INFORMATION
  Report Type: 
  Country: None (occurrence: None)
  Receive Date: 20100331
  Receipt Date: 20100318
  Transmission Date: 20100710
  Serious: Yes (Hospitalization)
  Sender: FDA-Public Use
  Company Number: ES-CELGENEUS-144-50794-10031876

PATIENT
  Age: 68 Year
  Sex: Male

DRUGS (3)
  1. VIDAZA [Suspect]
     Route: 058
     Dates: end: 20100301
  2. ANTI-EMETIC DRUGS [Concomitant]
     Indication: DRUG USE FOR UNKNOWN INDICATION
     Route: 065
  3. PLATELET TRANSFUSIONS [Concomitant]
     Indication: PROPHYLAXIS
     Route: 051

REACTIONS (2)
  - FALL [None]
  - SUBDURAL HAEMATOMA [None]
